FAERS Safety Report 4583578-7 (Version None)
Quarter: 2005Q1

REPORT INFORMATION
  Report Type: 
  Country: None (occurrence: None)
  Receive Date: 20050216
  Receipt Date: 20050204
  Transmission Date: 20050727
  Serious: Yes (Hospitalization)
  Sender: FDA-Public Use
  Company Number: PHNU2005DE00842

PATIENT
  Sex: Female

DRUGS (1)
  1. PRAVIDEL [Suspect]
     Indication: SUPPRESSED LACTATION
     Dosage: 2.5 MG, QD
     Route: 048
     Dates: start: 20050101, end: 20050101

REACTIONS (3)
  - ARTHROPATHY [None]
  - PSYCHOTIC DISORDER [None]
  - TRANSIENT PSYCHOSIS [None]
